FAERS Safety Report 5977845-X (Version None)
Quarter: 2008Q4

REPORT INFORMATION
  Report Type: 
  Country: None (occurrence: None)
  Receive Date: 20081203
  Receipt Date: 20081121
  Transmission Date: 20090506
  Serious: Yes (Life-Threatening, Hospitalization, Other)
  Sender: FDA-Public Use
  Company Number: US-SANOFI-SYNTHELABO-A03200801246

PATIENT
  Sex: Female

DRUGS (17)
  1. NAPROXEN [Concomitant]
     Indication: ARTHRITIS
     Route: 048
     Dates: start: 20060601, end: 20080118
  2. METOPROLOL [Concomitant]
     Indication: HYPERTENSION
     Route: 048
     Dates: start: 20061029, end: 20071225
  3. ZESTRIL [Concomitant]
     Indication: HYPERTENSION
     Route: 048
     Dates: start: 20061029
  4. ZOCOR [Concomitant]
     Indication: DYSLIPIDAEMIA
     Route: 048
     Dates: start: 20061029, end: 20071225
  5. ZOCOR [Concomitant]
     Route: 048
     Dates: start: 20071226
  6. COREG [Concomitant]
     Indication: HYPERTENSION
     Route: 048
     Dates: start: 20071226
  7. ASPIRIN [Concomitant]
     Indication: ANTICOAGULANT THERAPY
     Route: 048
     Dates: start: 20061026, end: 20071228
  8. ASPIRIN [Concomitant]
     Route: 048
     Dates: start: 20080122
  9. RIVAROXABAN BID [Suspect]
     Indication: ACUTE CORONARY SYNDROME
     Route: 048
     Dates: start: 20071227, end: 20080118
  10. RIVAROXABAN BID [Suspect]
     Route: 048
     Dates: start: 20080121, end: 20080308
  11. ASPIRIN [Suspect]
     Indication: ACUTE CORONARY SYNDROME
     Dosage: UNK
     Route: 048
     Dates: start: 20071229, end: 20080121
  12. PLAVIX [Suspect]
     Indication: ANTIPLATELET THERAPY
     Route: 048
     Dates: start: 20071227
  13. PLAVIX [Suspect]
     Indication: ACUTE CORONARY SYNDROME
     Route: 048
     Dates: start: 20071227
  14. PLAVIX [Suspect]
     Route: 048
     Dates: start: 20061029, end: 20071226
  15. PLAVIX [Suspect]
     Route: 048
     Dates: start: 20061029, end: 20071226
  16. PLAVIX [Suspect]
     Route: 048
     Dates: start: 20080309, end: 20080309
  17. PLAVIX [Suspect]
     Route: 048
     Dates: start: 20080309, end: 20080309

REACTIONS (1)
  - IN-STENT CORONARY ARTERY RESTENOSIS [None]
